FAERS Safety Report 9224163 (Version 1)
Quarter: 2013Q1

REPORT INFORMATION
  Report Type: Spontaneous
  Country: US (occurrence: None)
  Receive Date: 20120914
  Receipt Date: 20120914
  Transmission Date: 20140127
  Serious: Yes (Hospitalization)
  Sender: FDA-Public Use
  Company Number: JPI-P-018259

PATIENT
  Age: 41 Year
  Sex: Female

DRUGS (4)
  1. XYREM [Suspect]
     Indication: NARCOLEPSY
     Route: 048
     Dates: start: 20091102
  2. LORAZEPAM [Concomitant]
  3. ARMODAFINIL [Concomitant]
  4. CARISOPROLOL [Concomitant]

REACTIONS (1)
  - Drug hypersensitivity [None]
